FAERS Safety Report 17463938 (Version 1)
Quarter: 2020Q1

REPORT INFORMATION
  Report Type: Other
  Country: PE (occurrence: PE)
  Receive Date: 20200226
  Receipt Date: 20200226
  Transmission Date: 20200409
  Serious: Yes (Congenital Anomaly, Other)
  Sender: FDA-Public Use
  Company Number: PE-MACLEODS PHARMACEUTICALS US LTD-MAC2020025280

PATIENT

DRUGS (4)
  1. LAMIVUDINE. [Suspect]
     Active Substance: LAMIVUDINE
     Indication: PRODUCT USED FOR UNKNOWN INDICATION
     Dosage: 300 MILLIGRAM, QD, 1 COURSE PRIOR TO CONCEPTION, DURING FIRST TRIMESTER AND DURING PREGANACY
     Route: 064
     Dates: start: 20121108
  2. KALETRA [Suspect]
     Active Substance: LOPINAVIR\RITONAVIR
     Indication: PRODUCT USED FOR UNKNOWN INDICATION
     Dosage: 800 MILLIGRAM, QD, 1 COURSE DURING FIRST TRIMESTER AND DURONG PREGNACY
     Route: 064
     Dates: start: 20130531
  3. TENOFOVIR 300MG [Suspect]
     Active Substance: TENOFOVIR DISOPROXIL
     Indication: PRODUCT USED FOR UNKNOWN INDICATION
     Dosage: 300 MILLIGRAM, QD, 1 COURSE PRIOR TO EXCEPTION, DURING FIRST TRIMESTER AND DURING PREGANACY
     Route: 064
     Dates: start: 20121108
  4. INTELENCE [Suspect]
     Active Substance: ETRAVIRINE
     Indication: PRODUCT USED FOR UNKNOWN INDICATION
     Dosage: 400 MILLIGRAM, QD, 1 COURSE DURING FIRST TRIMESTER
     Route: 064
     Dates: start: 20121108, end: 20130531

REACTIONS (3)
  - Premature baby [Unknown]
  - Neonatal respiratory distress syndrome [Unknown]
  - Foetal exposure during pregnancy [Unknown]
